FAERS Safety Report 11612360 (Version 1)
Quarter: 2015Q4

REPORT INFORMATION
  Report Type: Report from Study
  Country: US (occurrence: US)
  Receive Date: 20151008
  Receipt Date: 20151008
  Transmission Date: 20160304
  Serious: No
  Sender: FDA-Public Use
  Company Number: US-AMGEN-USASL2015100899

PATIENT
  Age: 55 Year
  Sex: Male

DRUGS (1)
  1. ENBREL [Suspect]
     Active Substance: ETANERCEPT
     Indication: RHEUMATOID ARTHRITIS
     Dosage: 50 MG, (EVERY 10DAYS TO TWO WEEKS)
     Route: 065

REACTIONS (5)
  - Dry skin [Unknown]
  - Skin discolouration [Unknown]
  - Rash [Unknown]
  - Inappropriate schedule of drug administration [Unknown]
  - Rash pruritic [Unknown]

NARRATIVE: CASE EVENT DATE: 20150401
